FAERS Safety Report 9356521 (Version 1)
Quarter: 2013Q2

REPORT INFORMATION
  Report Type: Spontaneous
  Country: FR (occurrence: FR)
  Receive Date: 20130619
  Receipt Date: 20130619
  Transmission Date: 20140414
  Serious: Yes (Other)
  Sender: FDA-Public Use
  Company Number: FR-ABBOTT-13P-056-1104218-00

PATIENT
  Sex: Female

DRUGS (1)
  1. ENANTONE LP PREP [Suspect]
     Indication: BREAST CANCER
     Route: 065

REACTIONS (3)
  - Disease progression [Not Recovered/Not Resolved]
  - Metastasis [Not Recovered/Not Resolved]
  - Menstruation normal [Not Recovered/Not Resolved]
